FAERS Safety Report 22182651 (Version 1)
Quarter: 2023Q2

REPORT INFORMATION
  Report Type: Spontaneous
  Country: CN (occurrence: None)
  Receive Date: 20230406
  Receipt Date: 20230406
  Transmission Date: 20230721
  Serious: Yes (Life-Threatening, Hospitalization, Other)
  Sender: FDA-Public Use
  Company Number: 2023A079734

PATIENT
  Age: 18 Year
  Sex: Male
  Weight: 65 kg

DRUGS (4)
  1. QUETIAPINE FUMARATE [Suspect]
     Active Substance: QUETIAPINE FUMARATE
     Indication: Completed suicide
     Dosage: 30 TABLET
     Route: 048
     Dates: start: 20221101, end: 20221101
  2. PROPRANOLOL HYDROCHLORIDE [Suspect]
     Active Substance: PROPRANOLOL HYDROCHLORIDE
     Indication: Completed suicide
     Dosage: 10TABLET
     Route: 048
     Dates: start: 20221101, end: 20221101
  3. VALPROATE SODIUM [Suspect]
     Active Substance: VALPROATE SODIUM
     Indication: Completed suicide
     Dosage: 30 TABLET
     Route: 048
     Dates: start: 20221101, end: 20221101
  4. PAROXETINE HYDROCHLORIDE [Suspect]
     Active Substance: PAROXETINE HYDROCHLORIDE
     Indication: Completed suicide
     Dosage: 30 TABLET
     Route: 048
     Dates: start: 20221101, end: 20230101

REACTIONS (8)
  - Toxicity to various agents [Unknown]
  - Loss of consciousness [Recovering/Resolving]
  - Rhabdomyolysis [Recovering/Resolving]
  - Dizziness [Unknown]
  - Nausea [Unknown]
  - Chest discomfort [Unknown]
  - Confusional state [Unknown]
  - Somnolence [Unknown]

NARRATIVE: CASE EVENT DATE: 20221101
